FAERS Safety Report 8925973 (Version 1)
Quarter: 2012Q4

REPORT INFORMATION
  Report Type: 
  Country: FR (occurrence: FR)
  Receive Date: 20121126
  Receipt Date: 20121126
  Transmission Date: 20130627
  Serious: Yes (Hospitalization)
  Sender: FDA-Public Use
  Company Number: FR-B.I. PHARMACEUTICALS,INC./RIDGEFIELD-2012-FF-01662FF

PATIENT
  Age: 89 Year
  Sex: Male

DRUGS (3)
  1. PRADAXA [Suspect]
     Indication: ATRIAL FIBRILLATION
     Dosage: 220 mg
     Route: 048
  2. DIURETICS [Concomitant]
  3. ACE INHIBITORS [Concomitant]

REACTIONS (3)
  - Haematuria [Unknown]
  - Urinary tract infection [Unknown]
  - Renal failure [Unknown]
